FAERS Safety Report 7124278-9 (Version None)
Quarter: 2010Q4

REPORT INFORMATION
  Report Type: 
  Country: None (occurrence: None)
  Receive Date: 20101126
  Receipt Date: 20101115
  Transmission Date: 20110411
  Serious: Yes (Hospitalization, Other)
  Sender: FDA-Public Use
  Company Number: PHBS2008CA04997

PATIENT
  Age: 41 Year
  Sex: Female

DRUGS (2)
  1. DICLOFENAC SODIUM [Suspect]
     Indication: ARTHRITIS
  2. ETANERCEPT [Concomitant]

REACTIONS (5)
  - ARTHRALGIA [None]
  - BOWEL MOVEMENT IRREGULARITY [None]
  - COLITIS COLLAGENOUS [None]
  - DEHYDRATION [None]
  - DIARRHOEA [None]
